FAERS Safety Report 15107558 (Version 2)
Quarter: 2018Q3

REPORT INFORMATION
  Report Type: Spontaneous
  Country: JP (occurrence: JP)
  Receive Date: 20180704
  Receipt Date: 20180730
  Transmission Date: 20181010
  Serious: Yes (Other)
  Sender: FDA-Public Use
  Company Number: JP-PFIZER INC-2018269943

PATIENT
  Age: 69 Year
  Sex: Male

DRUGS (4)
  1. ELPLAT [Suspect]
     Active Substance: OXALIPLATIN
     Indication: PANCREATIC CARCINOMA
     Dosage: UNK UNK, 1X/DAY (TOTAL OF 4 CYCLES)
     Route: 041
  2. LEVOFOLINATE CALCIUM [Concomitant]
     Active Substance: LEVOLEUCOVORIN CALCIUM
     Indication: PANCREATIC CARCINOMA
     Dosage: UNK (TOTAL OF 4 CYCLES)
  3. 5?FU [Concomitant]
     Active Substance: FLUOROURACIL
     Indication: PANCREATIC CARCINOMA
     Dosage: UNK (TOTAL OF 4 CYCLES)
  4. CAMPTO [Suspect]
     Active Substance: IRINOTECAN
     Indication: PANCREATIC CARCINOMA
     Dosage: UNK UNK, 1X/DAY (TOTAL OF 4 CYCLES)
     Route: 041

REACTIONS (6)
  - Disseminated intravascular coagulation [Unknown]
  - Subdiaphragmatic abscess [Unknown]
  - Arterial haemorrhage [Unknown]
  - Haemorrhagic anaemia [Unknown]
  - Splenic abscess [Unknown]
  - Septic shock [Unknown]
